FAERS Safety Report 4984853-4 (Version None)
Quarter: 2006Q2

REPORT INFORMATION
  Report Type: 
  Country: None (occurrence: None)
  Receive Date: 20060427
  Receipt Date: 20051017
  Transmission Date: 20061013
  Serious: Yes (Other)
  Sender: FDA-Public Use
  Company Number: US-ROCHE-421669

PATIENT
  Age: 56 Year
  Sex: Female

DRUGS (2)
  1. PEGASYS [Suspect]
     Indication: HEPATITIS C
     Route: 058
     Dates: start: 20050311, end: 20060303
  2. COPEGUS [Suspect]
     Indication: HEPATITIS C
     Route: 048
     Dates: start: 20050311, end: 20060303

REACTIONS (10)
  - CONSTIPATION [None]
  - DRY SKIN [None]
  - FATIGUE [None]
  - JOINT SWELLING [None]
  - LYMPHADENOPATHY [None]
  - PRURITUS [None]
  - RASH [None]
  - RETINAL DETACHMENT [None]
  - TINNITUS [None]
  - VISUAL FIELD DEFECT [None]
